FAERS Safety Report 4963309-9 (Version None)
Quarter: 2006Q2

REPORT INFORMATION
  Report Type: 
  Country: None (occurrence: None)
  Receive Date: 20060405
  Receipt Date: 20060324
  Transmission Date: 20061013
  Serious: Yes (Life-Threatening, Hospitalization)
  Sender: FDA-Public Use
  Company Number: US-BRISTOL-MYERS SQUIBB COMPANY-13326558

PATIENT
  Age: 33 Year
  Sex: Female

DRUGS (6)
  1. AVAPRO [Suspect]
     Indication: HYPERTENSION
     Route: 048
     Dates: start: 20060131, end: 20060201
  2. BENICAR HCT [Suspect]
     Indication: HYPERTENSION
     Route: 048
     Dates: start: 20051101, end: 20060131
  3. PREDNISONE [Concomitant]
     Route: 048
     Dates: start: 20060101, end: 20060101
  4. CLONIDINE [Concomitant]
  5. TOPROL-XL [Concomitant]
  6. NORVASC [Concomitant]

REACTIONS (4)
  - ANGIONEUROTIC OEDEMA [None]
  - HEPATITIS [None]
  - RASH MACULO-PAPULAR [None]
  - RENAL FAILURE ACUTE [None]
